FAERS Safety Report 25482056 (Version 4)
Quarter: 2025Q3

REPORT INFORMATION
  Report Type: Spontaneous
  Country: EU (occurrence: EU)
  Receive Date: 20250626
  Receipt Date: 20250924
  Transmission Date: 20251021
  Serious: Yes (Death, Hospitalization)
  Sender: UCB
  Company Number: EU-UCBSA-2025037993

PATIENT
  Age: 76 Year
  Sex: Female

DRUGS (4)
  1. RYSTIGGO [Suspect]
     Active Substance: ROZANOLIXIZUMAB-NOLI
     Indication: Myasthenia gravis
     Dates: start: 20250620
  2. CORTISONE [Concomitant]
     Active Substance: CORTISONE
     Indication: Myasthenia gravis
  3. MESTINON [Concomitant]
     Active Substance: PYRIDOSTIGMINE BROMIDE
     Indication: Myasthenia gravis
  4. ALDACTONE [Concomitant]
     Active Substance: SPIRONOLACTONE
     Indication: Myasthenia gravis

REACTIONS (2)
  - Septic shock [Fatal]
  - Nosocomial infection [Fatal]

NARRATIVE: CASE EVENT DATE: 20250620
